FAERS Safety Report 6238067-0 (Version None)
Quarter: 2009Q2

REPORT INFORMATION
  Report Type: 
  Country: None (occurrence: None)
  Receive Date: 20090622
  Receipt Date: 20090618
  Transmission Date: 20091009
  Serious: Yes (Hospitalization)
  Sender: FDA-Public Use
  Company Number: US-BRISTOL-MYERS SQUIBB COMPANY-14671044

PATIENT
  Age: 76 Year
  Sex: Male
  Weight: 80 kg

DRUGS (12)
  1. CARBOPLATIN [Suspect]
     Indication: METASTATIC MALIGNANT MELANOMA
     Dosage: 1 DF = AUC 6. INITIATED ON 21APR08 CYC3:16JUN08 CYC4:14JUL08
     Route: 042
     Dates: start: 20080714, end: 20080714
  2. TAXOL [Suspect]
     Indication: METASTATIC MALIGNANT MELANOMA
     Dosage: INITIATED ON 21APR08 CYC3:16JUN08 CYC4:14JUL08
     Route: 042
     Dates: start: 20080714, end: 20080714
  3. CP-870,893 [Suspect]
     Indication: METASTATIC MALIGNANT MELANOMA
     Dosage: CYCLE 1:23APR08(16.4MG);CYCLE 2:14MAY08(8.17MG);CYCLE 3:16JUN08(8.25MG);CYCLE 4:(8MG)16JUL08
     Route: 042
     Dates: start: 20080716, end: 20080716
  4. TOPROL-XL [Concomitant]
     Dates: start: 20080619, end: 20080714
  5. ACETYLSALICYLIC ACID [Concomitant]
  6. PROSCAR [Concomitant]
  7. CARDURA [Concomitant]
     Dates: end: 20080717
  8. ALBUTEROL [Concomitant]
  9. ZOMETA [Concomitant]
  10. DALMANE [Concomitant]
  11. IBUPROFEN [Concomitant]
  12. ZOFRAN [Concomitant]

REACTIONS (1)
  - ARRHYTHMIA [None]
